FAERS Safety Report 4843550-6 (Version None)
Quarter: 2005Q4

REPORT INFORMATION
  Report Type: 
  Country: None (occurrence: None)
  Receive Date: 20051129
  Receipt Date: 20051109
  Transmission Date: 20060501
  Serious: Yes (Hospitalization)
  Sender: FDA-Public Use
  Company Number: ES200511001823

PATIENT
  Age: 34 Year
  Sex: Male
  Weight: 85 kg

DRUGS (3)
  1. ZYPREXA [Suspect]
     Indication: PSYCHOTIC DISORDER
     Dosage: 20 MG, DAILY (1/D), ORAL
     Route: 048
     Dates: start: 20050811, end: 20050815
  2. CHLORIMIPRAMINE              (CLOMIPRAMINE) [Concomitant]
  3. DIAZEPAM [Concomitant]

REACTIONS (13)
  - ABASIA [None]
  - BLOOD CREATINE PHOSPHOKINASE INCREASED [None]
  - CLUMSINESS [None]
  - DEMYELINATION [None]
  - DYSARTHRIA [None]
  - DYSPHAGIA [None]
  - HYPERHIDROSIS [None]
  - LARYNGOSPASM [None]
  - MOVEMENT DISORDER [None]
  - MUSCLE RIGIDITY [None]
  - PYREXIA [None]
  - TREMOR [None]
  - URINARY RETENTION [None]
